FAERS Safety Report 8887107 (Version 4)
Quarter: 2012Q4

REPORT INFORMATION
  Report Type: 
  Country: AU (occurrence: AU)
  Receive Date: 20121105
  Receipt Date: 20121128
  Transmission Date: 20130627
  Serious: Yes (Other)
  Sender: FDA-Public Use
  Company Number: PHHY2012AU099844

PATIENT
  Age: 43 Year
  Sex: Male
  Weight: 107 kg

DRUGS (9)
  1. CLOZARIL [Suspect]
     Indication: SCHIZOPHRENIA, PARANOID TYPE
     Dosage: 400 mg, daily dose
     Dates: start: 19981005
  2. CLOZARIL [Suspect]
     Dosage: 500 mg, UNK
  3. CLOZARIL [Suspect]
     Dosage: 500 mg, UNK
     Dates: start: 20110520
  4. CLOZARIL [Suspect]
     Dosage: 550 mg, 50 mg mane and 500 mg nocte
     Dates: start: 20120821
  5. CLOZARIL [Suspect]
     Dosage: 525 mg, UNK
     Dates: start: 20120924
  6. CLOZARIL [Suspect]
     Dosage: 400 mg, UNK
     Dates: start: 20121026
  7. ARIPIPRAZOLE [Concomitant]
     Dosage: 7.5 mg, UNK
     Dates: start: 20120924
  8. ARIPIPRAZOLE [Concomitant]
     Dosage: 15 mg, UNK
     Dates: start: 20121026
  9. ARIPIPRAZOLE [Concomitant]
     Dosage: 20 mg, daily dose

REACTIONS (15)
  - Hepatitis C [Unknown]
  - Bundle branch block right [Unknown]
  - Heart valve incompetence [Unknown]
  - Aortic valve incompetence [Unknown]
  - Mitral valve incompetence [Unknown]
  - Pulmonary valve incompetence [Unknown]
  - Tricuspid valve incompetence [Unknown]
  - Electrocardiogram QT prolonged [Unknown]
  - Schizophrenia [Unknown]
  - Paranoia [Unknown]
  - Hallucination, auditory [Unknown]
  - Ideas of reference [Unknown]
  - Electrocardiogram change [Unknown]
  - Sinus tachycardia [Unknown]
  - Salivary hypersecretion [Unknown]
